FAERS Safety Report 8809929 (Version 1)
Quarter: 2012Q4

REPORT INFORMATION
  Report Type: 
  Country: CH (occurrence: CH)
  Receive Date: 20120926
  Receipt Date: 20120926
  Transmission Date: 20130627
  Serious: Yes (Congenital Anomaly, Other)
  Sender: FDA-Public Use
  Company Number: CH-TEVA-359310ISR

PATIENT

DRUGS (5)
  1. AMOXICILLIN [Suspect]
     Dosage: Dosage unknown
     Route: 064
     Dates: start: 201201, end: 201201
  2. ZOVIRAX [Suspect]
     Dosage: 1800 Milligram Daily;
     Route: 064
     Dates: start: 201201
  3. LAMICTAL [Suspect]
     Dosage: Daily, progressive dose increase to 150 mg/ day
     Route: 064
     Dates: start: 201201
  4. RIVOTRIL [Suspect]
     Dosage: 1 Milligram Daily;
     Route: 064
  5. ROCEPHIN [Suspect]
     Dosage: 1 Dosage forms Daily; Dosage unknown
     Route: 064
     Dates: start: 201201, end: 201201

REACTIONS (2)
  - Exposure during pregnancy [Recovered/Resolved]
  - Transposition of the great vessels [Unknown]
